FAERS Safety Report 13697044 (Version 1)
Quarter: 2017Q2

REPORT INFORMATION
  Report Type: Spontaneous
  Country: US (occurrence: US)
  Receive Date: 20170627
  Receipt Date: 20170627
  Transmission Date: 20170830
  Serious: Yes (Hospitalization, Disabling)
  Sender: FDA-Public Use
  Company Number: None

PATIENT
  Age: 43 Year
  Sex: Female
  Weight: 75.15 kg

DRUGS (1)
  1. ALPRAZOLAM. [Suspect]
     Active Substance: ALPRAZOLAM
     Indication: ANXIETY
     Route: 048

REACTIONS (17)
  - Suicidal ideation [None]
  - Insomnia [None]
  - Confusional state [None]
  - Abnormal behaviour [None]
  - Balance disorder [None]
  - Mental disorder [None]
  - Anxiety [None]
  - Paranoia [None]
  - Depersonalisation/derealisation disorder [None]
  - Hallucination, auditory [None]
  - Hallucination, visual [None]
  - Derealisation [None]
  - Fear [None]
  - Panic attack [None]
  - Intrusive thoughts [None]
  - Cognitive disorder [None]
  - Tachyphrenia [None]

NARRATIVE: CASE EVENT DATE: 20170312
